FAERS Safety Report 4897816-4 (Version None)
Quarter: 2006Q1

REPORT INFORMATION
  Report Type: 
  Country: None (occurrence: None)
  Receive Date: 20060201
  Receipt Date: 20030204
  Transmission Date: 20060701
  Serious: Yes (Other)
  Sender: FDA-Public Use
  Company Number: US-GLAXOSMITHKLINE-A0395382A

PATIENT
  Age: 54 Year
  Sex: Female

DRUGS (3)
  1. WELLBUTRIN SR [Suspect]
     Indication: DEPRESSION
     Dosage: 150MG TWICE PER DAY
     Route: 048
     Dates: start: 20030101, end: 20030121
  2. ATENOLOL [Concomitant]
  3. ALEVE [Concomitant]

REACTIONS (13)
  - AGITATION [None]
  - ANGER [None]
  - BLOOD PRESSURE DECREASED [None]
  - CONFUSIONAL STATE [None]
  - FEAR [None]
  - FRUSTRATION [None]
  - IMPATIENCE [None]
  - IRRITABILITY [None]
  - MEMORY IMPAIRMENT [None]
  - PERSONALITY CHANGE [None]
  - STRESS [None]
  - SUICIDAL IDEATION [None]
  - VIRAL INFECTION [None]
